FAERS Safety Report 24192520 (Version 5)
Quarter: 2024Q4

REPORT INFORMATION
  Report Type: Report from Study
  Country: IL (occurrence: IL)
  Receive Date: 20240809
  Receipt Date: 20241210
  Transmission Date: 20250115
  Serious: Yes (Death)
  Sender: ABBVIE
  Company Number: IL-ABBVIE-5840963

PATIENT
  Age: 78 Year
  Sex: Female

DRUGS (2)
  1. CARBIDOPA\LEVODOPA [Suspect]
     Active Substance: CARBIDOPA\LEVODOPA
     Indication: Parkinson^s disease
     Dosage: CONTINUOUS DOSAGE 3ML/H, EXTRA DOSAGE 3ML, NIGHT CONTINUOUS DOSAGE 2.5ML/H
     Route: 050
  2. CARBIDOPA\LEVODOPA [Suspect]
     Active Substance: CARBIDOPA\LEVODOPA
     Route: 050
     Dates: start: 20230122

REACTIONS (3)
  - General physical health deterioration [Fatal]
  - Decubitus ulcer [Fatal]
  - Hypophagia [Unknown]

NARRATIVE: CASE EVENT DATE: 20240714
